FAERS Safety Report 4572029-4 (Version None)
Quarter: 2005Q1

REPORT INFORMATION
  Report Type: 
  Country: None (occurrence: None)
  Receive Date: 20050202
  Receipt Date: 20050202
  Transmission Date: 20050727
  Serious: Yes (Hospitalization)
  Sender: FDA-Public Use
  Company Number: None

PATIENT
  Age: 59 Year
  Sex: Male
  Weight: 84.8226 kg

DRUGS (1)
  1. PRIMOXIN 500 MG IV Q 8 HOURS [Suspect]
     Indication: APPENDICEAL ABSCESS
     Dosage: 500MG IV Q 8 HOURS
     Route: 042
     Dates: start: 20050126, end: 20050128

REACTIONS (1)
  - CONVULSION [None]
